FAERS Safety Report 10580124 (Version 1)
Quarter: 2014Q4

REPORT INFORMATION
  Report Type: Spontaneous
  Country: US (occurrence: US)
  Receive Date: 20141112
  Receipt Date: 20141112
  Transmission Date: 20150529
  Serious: No
  Sender: FDA-Public Use
  Company Number: US-PFIZER INC-2014311178

PATIENT
  Age: 45 Year
  Sex: Male
  Weight: 57.14 kg

DRUGS (2)
  1. LYRICA [Suspect]
     Active Substance: PREGABALIN
     Dosage: 225 MG , 1X/DAY (3 CAPSULES OF 75 MG, EVERY NIGHT)
  2. BACLOFEN. [Concomitant]
     Active Substance: BACLOFEN
     Dosage: UNK

REACTIONS (1)
  - Drug withdrawal syndrome [Recovered/Resolved]
